FAERS Safety Report 7990916-1 (Version None)
Quarter: 2011Q4

REPORT INFORMATION
  Report Type: 
  Country: None (occurrence: None)
  Receive Date: 20111219
  Receipt Date: 20111122
  Transmission Date: 20120403
  Serious: No
  Sender: FDA-Public Use
  Company Number: US-ROXANE LABORATORIES, INC.-2011-RO-01765RO

PATIENT
  Sex: Female

DRUGS (6)
  1. BACLOFEN [Concomitant]
  2. TRILEPTAL [Concomitant]
  3. OXCARBAZEPINE [Suspect]
     Indication: FACIAL PAIN
     Dosage: 1200 MG
     Route: 048
     Dates: start: 20111001, end: 20111128
  4. OXCARBAZEPINE [Suspect]
     Indication: EYE PAIN
  5. CYMBALTA [Concomitant]
  6. SEROQUEL [Concomitant]

REACTIONS (1)
  - THERAPEUTIC RESPONSE UNEXPECTED WITH DRUG SUBSTITUTION [None]
